FAERS Safety Report 12891232 (Version 1)
Quarter: 2016Q4

REPORT INFORMATION
  Report Type: Spontaneous
  Country: US (occurrence: US)
  Receive Date: 20161026
  Receipt Date: 20161026
  Transmission Date: 20170207
  Serious: Yes (Life-Threatening)
  Sender: FDA-Public Use
  Company Number: None

PATIENT
  Age: 9 Year
  Sex: Male
  Weight: 29.25 kg

DRUGS (3)
  1. VYVANSE [Suspect]
     Active Substance: LISDEXAMFETAMINE DIMESYLATE
     Indication: ATTENTION DEFICIT/HYPERACTIVITY DISORDER
     Dosage: ?          QUANTITY:1 CAPSULE(S);?
     Route: 048
     Dates: start: 20160815, end: 20161024
  2. QUILLAVENT XR [Concomitant]
  3. PROZAC [Suspect]
     Active Substance: FLUOXETINE HYDROCHLORIDE
     Indication: BIPOLAR I DISORDER
     Dosage: ?          QUANTITY:0.5 TEASPOON(S);?
     Route: 048
     Dates: start: 20160908, end: 20161024

REACTIONS (6)
  - Suicidal ideation [None]
  - Diet refusal [None]
  - Decreased appetite [None]
  - Cyst [None]
  - Bipolar I disorder [None]
  - Decreased interest [None]

NARRATIVE: CASE EVENT DATE: 20161021
